FAERS Safety Report 6482902-8 (Version None)
Quarter: 2009Q4

REPORT INFORMATION
  Report Type: 
  Country: None (occurrence: None)
  Receive Date: 20091209
  Receipt Date: 20091029
  Transmission Date: 20100525
  Serious: No
  Sender: FDA-Public Use
  Company Number: US-AMGEN-KDL371830

PATIENT
  Sex: Female

DRUGS (1)
  1. ENBREL [Suspect]
     Indication: RHEUMATOID ARTHRITIS
     Route: 058
     Dates: start: 20050605

REACTIONS (5)
  - ARTHROPOD BITE [None]
  - ASTHMA [None]
  - BLOOD BLISTER [None]
  - HYPERSENSITIVITY [None]
  - PURULENCE [None]
